FAERS Safety Report 6260318-7 (Version None)
Quarter: 2009Q3

REPORT INFORMATION
  Report Type: 
  Country: None (occurrence: None)
  Receive Date: 20090708
  Receipt Date: 20090701
  Transmission Date: 20100115
  Serious: Yes (Other)
  Sender: FDA-Public Use
  Company Number: ES-GENENTECH-285992

PATIENT
  Age: 55 Year
  Sex: Female

DRUGS (1)
  1. RAPTIVA [Suspect]
     Indication: DRUG USE FOR UNKNOWN INDICATION
     Dosage: 50 MG, 1/WEEK
     Route: 058
     Dates: start: 20070622, end: 20070907

REACTIONS (9)
  - ALANINE AMINOTRANSFERASE INCREASED [None]
  - ANTIBODY TEST POSITIVE [None]
  - ASPARTATE AMINOTRANSFERASE [None]
  - AUTOIMMUNE HEPATITIS [None]
  - GAMMA-GLUTAMYLTRANSFERASE INCREASED [None]
  - HEPATIC FIBROSIS [None]
  - HEPATIC NECROSIS [None]
  - IMMUNOGLOBULINS INCREASED [None]
  - LYMPHOCYTIC INFILTRATION [None]
